FAERS Safety Report 9751056 (Version 2)
Quarter: 2013Q4

REPORT INFORMATION
  Report Type: Spontaneous
  Country: US (occurrence: US)
  Receive Date: 20131212
  Receipt Date: 20131212
  Transmission Date: 20140711
  Serious: No
  Sender: FDA-Public Use
  Company Number: US-TEVA-398758USA

PATIENT
  Age: 24 Year
  Sex: Female
  Weight: 83.54 kg

DRUGS (4)
  1. PARAGARD 380A [Suspect]
     Indication: CONTRACEPTION
     Route: 015
     Dates: start: 20120125, end: 20130419
  2. NEXIUM [Concomitant]
     Indication: DYSPEPSIA
  3. MIRALAX [Concomitant]
     Indication: DYSPEPSIA
  4. AMITRIPTYLINE [Concomitant]
     Indication: DEPRESSION

REACTIONS (13)
  - Arthralgia [Not Recovered/Not Resolved]
  - Abdominal pain [Not Recovered/Not Resolved]
  - Adnexa uteri pain [Not Recovered/Not Resolved]
  - Flank pain [Not Recovered/Not Resolved]
  - Dyspareunia [Not Recovered/Not Resolved]
  - Fungal infection [Not Recovered/Not Resolved]
  - Vaginal discharge [Not Recovered/Not Resolved]
  - Metrorrhagia [Not Recovered/Not Resolved]
  - Milk allergy [Not Recovered/Not Resolved]
  - Chest pain [Not Recovered/Not Resolved]
  - Joint swelling [Not Recovered/Not Resolved]
  - Tenderness [Unknown]
  - Menstruation delayed [Unknown]
